FAERS Safety Report 9356382 (Version 1)
Quarter: 2013Q2

REPORT INFORMATION
  Report Type: Spontaneous
  Country: US (occurrence: None)
  Receive Date: 20130614
  Receipt Date: 20130614
  Transmission Date: 20140414
  Serious: Yes (Other)
  Sender: FDA-Public Use
  Company Number: 2012US00000821

PATIENT
  Age: 76 Year
  Sex: Male
  Weight: 75.3 kg

DRUGS (3)
  1. PONATINIB (AP24534) TABLET [Suspect]
     Indication: CHRONIC MYELOID LEUKAEMIA
     Route: 048
     Dates: start: 20120801, end: 20120822
  2. LISINOPRIL/HCTZ [Concomitant]
  3. FOLIC ACID [Concomitant]

REACTIONS (13)
  - Ejection fraction decreased [None]
  - Renal failure acute [None]
  - Cardiac aneurysm [None]
  - Aortic valve sclerosis [None]
  - Tricuspid valve sclerosis [None]
  - Tricuspid valve incompetence [None]
  - Ventricular septal defect [None]
  - Stevens-Johnson syndrome [None]
  - Skin exfoliation [None]
  - Decreased appetite [None]
  - Heart rate increased [None]
  - Blood creatinine increased [None]
  - Cardiac failure congestive [None]
